FAERS Safety Report 20238990 (Version 1)
Quarter: 2021Q4

REPORT INFORMATION
  Report Type: Spontaneous
  Country: CN (occurrence: CN)
  Receive Date: 20211228
  Receipt Date: 20211228
  Transmission Date: 20220303
  Serious: Yes (Hospitalization, Other)
  Sender: FDA-Public Use
  Company Number: CN-OTSUKA-2021_045263

PATIENT
  Age: 51 Year
  Sex: Male
  Weight: 62 kg

DRUGS (3)
  1. TOLVAPTAN [Suspect]
     Active Substance: TOLVAPTAN
     Indication: Polyuria
     Dosage: 15 MG, QD
     Route: 048
     Dates: start: 20211117, end: 20211118
  2. WARFARIN SODIUM [Suspect]
     Active Substance: WARFARIN SODIUM
     Indication: Anticoagulant therapy
     Dosage: 1.875 MG, QD
     Route: 048
     Dates: start: 20031220, end: 20211117
  3. TORSEMIDE [Suspect]
     Active Substance: TORSEMIDE
     Indication: Polyuria
     Dosage: 40 MG, QD
     Route: 042
     Dates: start: 20211117, end: 20211118

REACTIONS (3)
  - International normalised ratio increased [Recovering/Resolving]
  - Hypokalaemia [Recovering/Resolving]
  - Product use in unapproved indication [Unknown]

NARRATIVE: CASE EVENT DATE: 20211117
